FAERS Safety Report 10410155 (Version 2)
Quarter: 2014Q3

REPORT INFORMATION
  Report Type: Spontaneous
  Country: US (occurrence: US)
  Receive Date: 20140826
  Receipt Date: 20140910
  Transmission Date: 20150326
  Serious: Yes (Other)
  Sender: FDA-Public Use
  Company Number: US-PFIZER INC-2014235829

PATIENT
  Age: 69 Year
  Sex: Male

DRUGS (2)
  1. NEURONTIN [Suspect]
     Active Substance: GABAPENTIN
     Indication: NEUROPATHY PERIPHERAL
     Dosage: 600 MG, 4X/DAY
     Dates: start: 2004
  2. NEURONTIN [Suspect]
     Active Substance: GABAPENTIN
     Dosage: 1200 MG (600MG ONE TIME AND 300MG OTHER TWO TIMES IN A DAY), DAILY

REACTIONS (2)
  - Cerebrovascular accident [Unknown]
  - Fluid retention [Unknown]
